FAERS Safety Report 8360569-1 (Version None)
Quarter: 2012Q2

REPORT INFORMATION
  Report Type: 
  Country: None (occurrence: None)
  Receive Date: 20120515
  Receipt Date: 20120511
  Transmission Date: 20120825
  Serious: Yes (Other)
  Sender: FDA-Public Use
  Company Number: PHHY2012AU037968

PATIENT
  Sex: Female

DRUGS (2)
  1. ZOLEDRONOC ACID [Suspect]
     Dosage: ONLY 10 ML INFUSED
     Route: 042
     Dates: start: 20120430
  2. ZOLEDRONOC ACID [Suspect]
     Dosage: 5 MG, UNK
     Route: 042
     Dates: start: 20110510

REACTIONS (12)
  - POOR VENOUS ACCESS [None]
  - SYNCOPE [None]
  - MALAISE [None]
  - INCORRECT DOSE ADMINISTERED [None]
  - PRESYNCOPE [None]
  - COLD SWEAT [None]
  - HEART RATE DECREASED [None]
  - BLOOD PRESSURE DECREASED [None]
  - DEPRESSED LEVEL OF CONSCIOUSNESS [None]
  - FATIGUE [None]
  - SOMNOLENCE [None]
  - DYSSTASIA [None]
